FAERS Safety Report 10353290 (Version 3)
Quarter: 2014Q3

REPORT INFORMATION
  Report Type: Spontaneous
  Country: US (occurrence: US)
  Receive Date: 20140731
  Receipt Date: 20140918
  Transmission Date: 20150326
  Serious: Yes (Other)
  Sender: FDA-Public Use
  Company Number: US-AMGEN INC.-USASP2014056329

PATIENT
  Age: 86 Year
  Sex: Male
  Weight: 86 kg

DRUGS (1)
  1. NPLATE [Suspect]
     Active Substance: ROMIPLOSTIM
     Indication: IMMUNE THROMBOCYTOPENIC PURPURA
     Dosage: UNK
     Route: 065
     Dates: start: 201307, end: 20140620

REACTIONS (5)
  - Megakaryocytes decreased [Unknown]
  - Marrow hyperplasia [Unknown]
  - Platelet count decreased [Unknown]
  - Therapeutic response decreased [Unknown]
  - Bone marrow reticulin fibrosis [Unknown]

NARRATIVE: CASE EVENT DATE: 201405
